FAERS Safety Report 4361908-9 (Version None)
Quarter: 2004Q2

REPORT INFORMATION
  Report Type: 
  Country: None (occurrence: None)
  Receive Date: 20040521
  Receipt Date: 20040106
  Transmission Date: 20050107
  Serious: No
  Sender: FDA-Public Use
  Company Number: 03-12-1617

PATIENT
  Age: 25 Year
  Sex: Female

DRUGS (4)
  1. THORAZINE [Suspect]
     Indication: ILL-DEFINED DISORDER
     Route: 065
     Dates: end: 20031216
  2. CLOZAPINE [Suspect]
     Indication: ILL-DEFINED DISORDER
     Dosage: 50MG PER DAY
     Route: 048
     Dates: start: 20031101, end: 20031216
  3. RISPERDAL [Suspect]
     Indication: ILL-DEFINED DISORDER
     Route: 065
     Dates: end: 20031216
  4. DEPAKOTE [Suspect]
     Indication: ILL-DEFINED DISORDER
     Route: 065

REACTIONS (2)
  - DIARRHOEA [None]
  - LETHARGY [None]
